FAERS Safety Report 4821843-6 (Version None)
Quarter: 2005Q4

REPORT INFORMATION
  Report Type: 
  Country: None (occurrence: None)
  Receive Date: 20051107
  Receipt Date: 20051026
  Transmission Date: 20060501
  Serious: Yes (Other)
  Sender: FDA-Public Use
  Company Number: 2005UW16541

PATIENT
  Age: 16 Year
  Sex: Female

DRUGS (4)
  1. IRESSA [Suspect]
     Indication: CARDIAC NEOPLASM MALIGNANT
     Route: 048
     Dates: start: 20051001
  2. IRESSA [Suspect]
     Indication: LUNG NEOPLASM MALIGNANT
     Route: 048
     Dates: start: 20051001
  3. CAMPTOSAR [Suspect]
     Indication: CARDIAC NEOPLASM MALIGNANT
     Dates: start: 20051001
  4. CAMPTOSAR [Suspect]
     Indication: LUNG NEOPLASM MALIGNANT
     Dates: start: 20051001

REACTIONS (3)
  - DIARRHOEA [None]
  - HYPOKALAEMIA [None]
  - NEUTROPENIA [None]
